FAERS Safety Report 5078445-9 (Version None)
Quarter: 2006Q3

REPORT INFORMATION
  Report Type: 
  Country: None (occurrence: None)
  Receive Date: 20060808
  Receipt Date: 20060721
  Transmission Date: 20061208
  Serious: Yes (Hospitalization)
  Sender: FDA-Public Use
  Company Number: CA200607004419

PATIENT
  Age: 85 Year
  Sex: Female

DRUGS (6)
  1. FORTEO [Suspect]
     Indication: OSTEOPOROSIS
     Dosage: 20 UG, DAILY (1/D)
     Dates: start: 20060209
  2. FORTEO PEN (FORTEO PEN) PEN, DISPOSABLE [Concomitant]
  3. LEVOTHYROXINE SODIUM [Concomitant]
  4. INDAPAMIDE [Concomitant]
  5. CALCIUM (CALCIUM) [Concomitant]
  6. VITAMIN D NOS (VITAMIN D NOS) [Concomitant]

REACTIONS (2)
  - FALL [None]
  - HIP FRACTURE [None]
